FAERS Safety Report 10944456 (Version 1)
Quarter: 2015Q1

REPORT INFORMATION
  Report Type: Spontaneous
  Country: US (occurrence: None)
  Receive Date: 20150320
  Receipt Date: 20150320
  Transmission Date: 20150721
  Serious: No
  Sender: FDA-Public Use
  Company Number: None

PATIENT
  Age: 64 Year
  Sex: Male
  Weight: 101 kg

DRUGS (3)
  1. LEUCOVORIN CALCIUM. [Suspect]
     Active Substance: LEUCOVORIN CALCIUM
     Dates: start: 20140707
  2. 5-FLUOROURACIL [Suspect]
     Active Substance: FLUOROURACIL
     Dates: start: 20141220
  3. ELOXATIN [Suspect]
     Active Substance: OXALIPLATIN
     Dates: start: 20140707

REACTIONS (5)
  - Depression [None]
  - Frequent bowel movements [None]
  - Defaecation urgency [None]
  - Anal fissure [None]
  - Proctalgia [None]

NARRATIVE: CASE EVENT DATE: 20140808
